FAERS Safety Report 6452014-8 (Version None)
Quarter: 2009Q4

REPORT INFORMATION
  Report Type: 
  Country: None (occurrence: None)
  Receive Date: 20091123
  Receipt Date: 20091113
  Transmission Date: 20100525
  Serious: Yes (Other)
  Sender: FDA-Public Use
  Company Number: CA-ABBOTT-09P-028-0609542-00

PATIENT
  Sex: Female
  Weight: 61.744 kg

DRUGS (6)
  1. HUMIRA [Suspect]
     Indication: CROHN'S DISEASE
     Dosage: WEEK 0
     Route: 058
     Dates: start: 20090115, end: 20090115
  2. HUMIRA [Suspect]
     Dosage: WEEK 2
     Route: 058
  3. HUMIRA [Suspect]
     Dosage: 160MG AT WEEK 0, 80MG AT WEEK 2 THEN 40MG EVERY OTHER WEEK
     Route: 058
     Dates: end: 20090907
  4. HUMIRA [Suspect]
     Route: 058
     Dates: start: 20090907
  5. PREVACID [Concomitant]
     Indication: DRUG USE FOR UNKNOWN INDICATION
  6. INFUFER [Concomitant]
     Indication: DRUG USE FOR UNKNOWN INDICATION
     Route: 030

REACTIONS (2)
  - BLEEDING TIME PROLONGED [None]
  - MENORRHAGIA [None]
